FAERS Safety Report 24792159 (Version 2)
Quarter: 2025Q1

REPORT INFORMATION
  Report Type: Spontaneous
  Country: US (occurrence: US)
  Receive Date: 20241231
  Receipt Date: 20250103
  Transmission Date: 20250409
  Serious: No
  Sender: NOVARTIS
  Company Number: US-SANDOZ-SDZ2024US106031

PATIENT
  Age: 42 Year
  Sex: Male

DRUGS (4)
  1. LOSARTAN [Suspect]
     Active Substance: LOSARTAN
     Indication: Hypertension
     Route: 065
     Dates: start: 2024
  2. VALSARTAN [Suspect]
     Active Substance: VALSARTAN
     Indication: Hypertension
     Route: 065
     Dates: start: 2024
  3. AMLODIPINE [Suspect]
     Active Substance: AMLODIPINE BESYLATE
     Indication: Hypertension
     Route: 065
     Dates: start: 2024
  4. Diurex [Concomitant]
     Indication: Product used for unknown indication
     Route: 065

REACTIONS (2)
  - Anxiety [Not Recovered/Not Resolved]
  - Depression [Not Recovered/Not Resolved]

NARRATIVE: CASE EVENT DATE: 20240101
